FAERS Safety Report 5460896-1 (Version None)
Quarter: 2007Q3

REPORT INFORMATION
  Report Type: 
  Country: None (occurrence: None)
  Receive Date: 20070827
  Receipt Date: 20060711
  Transmission Date: 20080115
  Serious: Yes (Other)
  Sender: FDA-Public Use
  Company Number: 2006061047

PATIENT
  Age: 77 Year
  Sex: Female
  Weight: 52.6173 kg

DRUGS (8)
  1. VFEND [Suspect]
     Indication: SINUSITIS FUNGAL
     Dosage: 400 MG (200 MG, 2 IN 1 D)
     Dates: start: 20060427, end: 20060430
  2. ANTIBIOTICS (ANTIBIOTICS) [Suspect]
     Indication: DRUG USE FOR UNKNOWN INDICATION
  3. VYTORIN [Concomitant]
  4. ASPIRIN [Concomitant]
  5. TRIAMTERENE (TRIAMTERENE) [Concomitant]
  6. INDERAL [Concomitant]
  7. PRILOSEC [Concomitant]
  8. FOSAMAX [Concomitant]

REACTIONS (4)
  - DRUG INEFFECTIVE [None]
  - EYE DISORDER [None]
  - HALLUCINATION, VISUAL [None]
  - RASH [None]
